FAERS Safety Report 13301902 (Version 1)
Quarter: 2017Q1

REPORT INFORMATION
  Report Type: Spontaneous
  Country: US (occurrence: US)
  Receive Date: 20170307
  Receipt Date: 20170307
  Transmission Date: 20170428
  Serious: Yes (Hospitalization)
  Sender: FDA-Public Use
  Company Number: None

PATIENT
  Age: 65 Year
  Sex: Female
  Weight: 71.1 kg

DRUGS (2)
  1. AUGMENTIN [Suspect]
     Active Substance: AMOXICILLIN\CLAVULANATE POTASSIUM
     Indication: ACUTE SINUSITIS
     Dates: start: 20170208, end: 20170214
  2. MULTI VITAMIN [Concomitant]
     Active Substance: VITAMINS

REACTIONS (1)
  - Diplopia [None]

NARRATIVE: CASE EVENT DATE: 20170208
